FAERS Safety Report 4325432-1 (Version None)
Quarter: 2004Q1

REPORT INFORMATION
  Report Type: 
  Country: None (occurrence: None)
  Receive Date: 20040324
  Receipt Date: 20040309
  Transmission Date: 20041129
  Serious: Yes (Hospitalization)
  Sender: FDA-Public Use
  Company Number: US-JNJFOC-20030904918

PATIENT
  Age: 55 Year
  Sex: Female
  Weight: 57.6068 kg

DRUGS (13)
  1. DURAGESIC [Suspect]
     Indication: PAIN
     Dosage: 75 UG/HR, 1 IN 72 HOUR, TRANSDERMAL; 50 UG/HR, 1 IN 72 HOUR, TRANSDERMAL
     Route: 062
     Dates: start: 20030730
  2. DURAGESIC [Suspect]
     Indication: PAIN
     Dosage: 75 UG/HR, 1 IN 72 HOUR, TRANSDERMAL; 50 UG/HR, 1 IN 72 HOUR, TRANSDERMAL
     Route: 062
     Dates: start: 20030730
  3. LIDOCAINE (PATCH) LIDOCAINE [Concomitant]
  4. VICODIN [Concomitant]
  5. BLOOD PRESSURE MEDICATION (ANTIHYPERTENSIVES) [Concomitant]
  6. WATER PILL (DIURETICS) [Concomitant]
  7. ANXIETY MEDICATION (ANXIOLYTICS) [Concomitant]
  8. HUMULIN (NOVOLIN 20/80) [Concomitant]
  9. SKELAXIN [Concomitant]
  10. BEXTRA [Concomitant]
  11. PREMARIN [Concomitant]
  12. MAALOX (MAALOX) [Concomitant]
  13. AMBIEN [Concomitant]

REACTIONS (8)
  - BACK PAIN [None]
  - DIABETES MELLITUS INADEQUATE CONTROL [None]
  - FATIGUE [None]
  - FEELING JITTERY [None]
  - INSOMNIA [None]
  - MUSCULOSKELETAL STIFFNESS [None]
  - SOMNOLENCE [None]
  - TREMOR [None]
